FAERS Safety Report 10086771 (Version 4)
Quarter: 2015Q1

REPORT INFORMATION
  Report Type: Spontaneous
  Country: US (occurrence: US)
  Receive Date: 20140418
  Receipt Date: 20150330
  Transmission Date: 20150720
  Serious: Yes (Hospitalization)
  Sender: FDA-Public Use
  Company Number: US-GLAXOSMITHKLINE-A1021013A

PATIENT
  Sex: Female

DRUGS (6)
  1. FLOLAN [Suspect]
     Active Substance: EPOPROSTENOL SODIUM
     Indication: PULMONARY ARTERIAL HYPERTENSION
     Dosage: 35.62 NG/KG/MIN CONTINUOUSLY, CONCENTRATION 45,000 NG/ML, PUMP RATE 62 ML/DAY, VIAL STRENGTH 1.[...]
     Route: 042
     Dates: start: 20041015
  2. FLOLAN [Suspect]
     Active Substance: EPOPROSTENOL SODIUM
     Dosage: 31.25 NG/KG/MIN
  3. FLOLAN [Suspect]
     Active Substance: EPOPROSTENOL SODIUM
     Dosage: 31.25 NG/KG/MIN CONTINUOUSLY
     Route: 042
     Dates: start: 20150324
  4. FLOLAN [Suspect]
     Active Substance: EPOPROSTENOL SODIUM
     Dosage: UNK
     Dates: start: 20041015
  5. FLOLAN [Suspect]
     Active Substance: EPOPROSTENOL SODIUM
     Dosage: UNK
     Dates: start: 20041015
  6. FLOLAN [Suspect]
     Active Substance: EPOPROSTENOL SODIUM
     Dosage: UNK
     Dates: start: 20041015

REACTIONS (14)
  - Nasopharyngitis [Not Recovered/Not Resolved]
  - Dyspnoea exertional [Unknown]
  - Asthenia [Unknown]
  - Oedema peripheral [Unknown]
  - Rash [Unknown]
  - Eye infection [Unknown]
  - Pain in jaw [Unknown]
  - Lung disorder [Unknown]
  - Dizziness [Unknown]
  - Cardiac disorder [Unknown]
  - Wheezing [Not Recovered/Not Resolved]
  - Upper respiratory tract infection [Unknown]
  - Rhinorrhoea [Recovered/Resolved]
  - Productive cough [Not Recovered/Not Resolved]
